FAERS Safety Report 5275928-3 (Version None)
Quarter: 2007Q1

REPORT INFORMATION
  Report Type: 
  Country: None (occurrence: None)
  Receive Date: 20070326
  Receipt Date: 20070314
  Transmission Date: 20070707
  Serious: Yes (Death, Hospitalization)
  Sender: FDA-Public Use
  Company Number: JP-JNJFOC-20070104070

PATIENT
  Sex: Female
  Weight: 41 kg

DRUGS (17)
  1. REMICADE [Suspect]
     Route: 042
  2. REMICADE [Suspect]
     Route: 042
  3. REMICADE [Suspect]
     Route: 042
  4. REMICADE [Suspect]
     Route: 042
  5. REMICADE [Suspect]
     Indication: RHEUMATOID ARTHRITIS
     Route: 042
  6. RHEUMATREX [Suspect]
     Indication: RHEUMATOID ARTHRITIS
     Route: 048
  7. PREDONINE [Suspect]
     Indication: RHEUMATOID ARTHRITIS
     Route: 048
  8. ISCOTIN [Concomitant]
     Indication: ANTIBIOTIC PROPHYLAXIS
     Route: 048
  9. PYRIDOXAL [Concomitant]
     Indication: PROPHYLAXIS
     Route: 048
  10. ASPARA-CA [Concomitant]
     Indication: OSTEOPOROSIS
     Route: 048
  11. TOYOFAROL [Concomitant]
     Indication: OSTEOPOROSIS
     Route: 048
  12. TAKEPRON [Concomitant]
     Indication: REFLUX OESOPHAGITIS
     Route: 048
  13. PROMAC [Concomitant]
     Indication: GASTRITIS
     Route: 048
  14. ARTIONE [Concomitant]
     Indication: HYPERTENSION
     Route: 048
  15. VODEL-S [Concomitant]
     Indication: CONSTIPATION
     Route: 048
  16. HALCION [Concomitant]
     Indication: INSOMNIA
     Route: 048
  17. VOLTAREN [Concomitant]
     Indication: RHEUMATOID ARTHRITIS
     Route: 054

REACTIONS (5)
  - DISSEMINATED INTRAVASCULAR COAGULATION [None]
  - INTERSTITIAL LUNG DISEASE [None]
  - PNEUMOCYSTIS JIROVECI PNEUMONIA [None]
  - RENAL FAILURE ACUTE [None]
  - RHEUMATOID ARTHRITIS [None]
